FAERS Safety Report 8051103-4 (Version None)
Quarter: 2012Q1

REPORT INFORMATION
  Report Type: 
  Country: None (occurrence: None)
  Receive Date: 20120117
  Receipt Date: 20120112
  Transmission Date: 20120608
  Serious: Yes (Death)
  Sender: FDA-Public Use
  Company Number: PHHY2011JP112990

PATIENT
  Age: 91 Year
  Sex: Male

DRUGS (2)
  1. EXELON [Suspect]
     Indication: DEMENTIA
     Dosage: 4.5 MG DAILY
     Route: 062
     Dates: start: 20111216, end: 20111218
  2. ARICEPT [Suspect]
     Indication: DEMENTIA
     Dosage: 5 MG, UNK
     Route: 048
     Dates: start: 20101101, end: 20111218

REACTIONS (4)
  - RENAL FAILURE ACUTE [None]
  - CEREBROVASCULAR DISORDER [None]
  - GENERAL PHYSICAL HEALTH DETERIORATION [None]
  - MIDDLE INSOMNIA [None]
